FAERS Safety Report 8837279 (Version 1)
Quarter: 2012Q4

REPORT INFORMATION
  Report Type: Spontaneous
  Country: US (occurrence: None)
  Receive Date: 20121011
  Receipt Date: 20121011
  Transmission Date: 20130627
  Serious: No
  Sender: FDA-Public Use
  Company Number: None

PATIENT
  Age: 76 Year
  Sex: Female

DRUGS (2)
  1. XELODA [Suspect]
     Dosage: 1000mg qam po
1500mg qpm x 2weeks on, 1week off
     Route: 048
     Dates: start: 20120215
  2. XELODA [Suspect]

REACTIONS (3)
  - Skin exfoliation [None]
  - Pruritus [None]
  - Hypoaesthesia [None]
